FAERS Safety Report 5340653-7 (Version None)
Quarter: 2007Q2

REPORT INFORMATION
  Report Type: 
  Country: None (occurrence: None)
  Receive Date: 20070531
  Receipt Date: 20070521
  Transmission Date: 20071010
  Serious: Yes (Other)
  Sender: FDA-Public Use
  Company Number: JP-PFIZER INC-2007041695

PATIENT
  Age: 51 Year
  Sex: Male

DRUGS (9)
  1. LIPITOR [Suspect]
     Dosage: DAILY DOSE:10MG
     Route: 048
  2. NORVASC [Suspect]
     Dosage: DAILY DOSE:5MG
     Route: 048
  3. ASPIRIN [Concomitant]
     Route: 048
  4. TICLOPIDINE HCL [Concomitant]
     Route: 048
  5. IMIDAPRIL HYDROCHLORIDE [Concomitant]
     Route: 048
  6. PARIET [Concomitant]
     Route: 048
  7. PLAVIX [Concomitant]
     Route: 048
  8. VALSARTAN [Concomitant]
     Route: 048
  9. CRESTOR [Concomitant]
     Route: 048

REACTIONS (2)
  - NEPHRITIS INTERSTITIAL [None]
  - PRURITUS [None]
